FAERS Safety Report 10891417 (Version 1)
Quarter: 2015Q1

REPORT INFORMATION
  Report Type: Spontaneous
  Country: US (occurrence: US)
  Receive Date: 20150306
  Receipt Date: 20150306
  Transmission Date: 20150721
  Serious: No
  Sender: FDA-Public Use
  Company Number: US-009507513-1502USA011982

PATIENT
  Age: 77 Year
  Sex: Male

DRUGS (3)
  1. ZETIA [Suspect]
     Active Substance: EZETIMIBE
     Indication: HYPERCHOLESTEROLAEMIA
     Dosage: SPLIT HIS ZETIA TABLETS BEGINNING IN MAY 2011 WHICH CONTINUED FOR 7 WEEKS
     Route: 048
     Dates: start: 201105
  2. ZETIA [Suspect]
     Active Substance: EZETIMIBE
     Dosage: UNK
     Route: 048
     Dates: start: 2008
  3. ZETIA [Suspect]
     Active Substance: EZETIMIBE
     Dosage: TAKING THE WHOLE ZETIA TABLET
     Route: 048
     Dates: start: 201106

REACTIONS (2)
  - Blood cholesterol increased [Recovered/Resolved]
  - Wrong technique in drug usage process [Unknown]

NARRATIVE: CASE EVENT DATE: 201105
